FAERS Safety Report 5896174-6 (Version None)
Quarter: 2008Q3

REPORT INFORMATION
  Report Type: 
  Country: None (occurrence: None)
  Receive Date: 20080924
  Receipt Date: 20080201
  Transmission Date: 20090109
  Serious: Yes (Other)
  Sender: FDA-Public Use
  Company Number: US-ASTRAZENECA-2006UW27930

PATIENT
  Age: 11713 Day
  Sex: Female
  Weight: 120.2 kg

DRUGS (3)
  1. SEROQUEL [Suspect]
     Indication: BIPOLAR DISORDER
     Dosage: 25 MG TO 300 MG
     Route: 048
     Dates: start: 20010701, end: 20070320
  2. SEROQUEL [Suspect]
     Indication: DEPRESSION
     Dosage: 25 MG TO 300 MG
     Route: 048
     Dates: start: 20010701, end: 20070320
  3. SEROQUEL [Suspect]
     Indication: PANIC ATTACK
     Dosage: 25 MG TO 300 MG
     Route: 048
     Dates: start: 20010701, end: 20070320

REACTIONS (3)
  - CONVULSION [None]
  - DIABETES MELLITUS [None]
  - SLUGGISHNESS [None]
